FAERS Safety Report 7475544-9 (Version None)
Quarter: 2011Q1

REPORT INFORMATION
  Report Type: 
  Country: None (occurrence: None)
  Receive Date: 20110308
  Receipt Date: 20101001
  Transmission Date: 20110831
  Serious: Yes (Life-Threatening, Other)
  Sender: FDA-Public Use
  Company Number: 2010BH025327

PATIENT
  Age: 7 Month
  Sex: Male

DRUGS (1)
  1. RECOMBINATE [Suspect]
     Indication: PROPHYLAXIS
     Dosage: 250 IU
     Dates: start: 19960401, end: 19960401

REACTIONS (1)
  - FACTOR VIII INHIBITION [None]
